FAERS Safety Report 9485996 (Version 4)
Quarter: 2014Q3

REPORT INFORMATION
  Report Type: Spontaneous
  Country: US (occurrence: None)
  Receive Date: 20130823
  Receipt Date: 20140814
  Transmission Date: 20150326
  Serious: Yes (Life-Threatening, Hospitalization)
  Sender: FDA-Public Use
  Company Number: 1713747-2013-99939

PATIENT

DRUGS (5)
  1. 0.9% SODIUM CHLORIDE INJECTION, USP IN MINI-BAG PLUS CONTAINER [Suspect]
     Active Substance: SODIUM CHLORIDE
     Indication: FLUID REPLACEMENT
     Dosage: 42
     Route: 042
     Dates: start: 20130718
  2. FRESENIUS COMBISET [Concomitant]
  3. FRESENIUS 2008K HEMODIALYSIS SYSTEM [Concomitant]
  4. FRESENIUS DIALYZER [Concomitant]
  5. FRESENIUS COLLECTIVE CONCENTRATE-NATURALYTE [Concomitant]

REACTIONS (4)
  - Adverse event [None]
  - Haemodialysis complication [None]
  - Death [None]
  - Malaise [None]

NARRATIVE: CASE EVENT DATE: 20130718
